FAERS Safety Report 17582908 (Version 1)
Quarter: 2020Q1

REPORT INFORMATION
  Report Type: Other
  Country: US (occurrence: US)
  Receive Date: 20200325
  Receipt Date: 20200325
  Transmission Date: 20200409
  Serious: No
  Sender: FDA-Public Use
  Company Number: US-VERASTEM-2019-00168

PATIENT

DRUGS (4)
  1. COPIKTRA [Suspect]
     Active Substance: DUVELISIB
     Dosage: 25MG BID
     Route: 048
     Dates: start: 20191218
  2. VENCLEXTA [Concomitant]
     Active Substance: VENETOCLAX
     Indication: PRODUCT USED FOR UNKNOWN INDICATION
     Dosage: 400 MG, UNK
     Dates: end: 2019
  3. VENCLEXTA [Concomitant]
     Active Substance: VENETOCLAX
     Dosage: 200 MG, UNK
     Dates: start: 2019
  4. COPIKTRA [Suspect]
     Active Substance: DUVELISIB
     Indication: LYMPHOCYTIC LEUKAEMIA
     Dosage: 25 MG, BID
     Route: 048
     Dates: start: 20190801, end: 20191015

REACTIONS (4)
  - Inappropriate schedule of product administration [Unknown]
  - Myalgia [Not Recovered/Not Resolved]
  - Product use in unapproved indication [Recovered/Resolved]
  - White blood cell count decreased [Not Recovered/Not Resolved]

NARRATIVE: CASE EVENT DATE: 2019
